FAERS Safety Report 7814576-5 (Version None)
Quarter: 2011Q4

REPORT INFORMATION
  Report Type: 
  Country: None (occurrence: None)
  Receive Date: 20111014
  Receipt Date: 20111006
  Transmission Date: 20120403
  Serious: Yes (Hospitalization, Other)
  Sender: FDA-Public Use
  Company Number: US-SANOFI-AVENTIS-2011SA066775

PATIENT
  Age: 68 Year
  Sex: Male

DRUGS (4)
  1. QUINAPRIL [Concomitant]
  2. METOPROLOL TARTRATE [Concomitant]
  3. DABIGATRAN [Concomitant]
  4. MULTAQ [Suspect]
     Route: 048
     Dates: start: 20110929, end: 20111006

REACTIONS (2)
  - DYSPNOEA [None]
  - DIASTOLIC DYSFUNCTION [None]
